FAERS Safety Report 10079275 (Version 1)
Quarter: 2014Q2

REPORT INFORMATION
  Report Type: Spontaneous
  Country: US (occurrence: None)
  Receive Date: 20140414
  Receipt Date: 20140414
  Transmission Date: 20141212
  Serious: Yes (Other)
  Sender: FDA-Public Use
  Company Number: None

PATIENT
  Age: 36 Year
  Sex: Male
  Weight: 81.65 kg

DRUGS (2)
  1. LORAZEPAM [Suspect]
     Indication: ANXIETY
     Dosage: 1 PILL
     Route: 048
     Dates: start: 20140407, end: 20140410
  2. LORAZEPAM [Suspect]
     Indication: ANXIETY
     Dosage: 1 PILL
     Route: 048
     Dates: start: 20140407, end: 20140410

REACTIONS (3)
  - Insomnia [None]
  - Paraesthesia [None]
  - Product substitution issue [None]
